FAERS Safety Report 4372583-1 (Version None)
Quarter: 2004Q2

REPORT INFORMATION
  Report Type: 
  Country: None (occurrence: None)
  Receive Date: 20040526
  Receipt Date: 20040518
  Transmission Date: 20050107
  Serious: Yes (Death)
  Sender: FDA-Public Use
  Company Number: DSA_60417_2004

PATIENT
  Age: 66 Year
  Sex: Female

DRUGS (1)
  1. DIHYDERGOT-HEPARIN [Suspect]
     Indication: THROMBOSIS PROPHYLAXIS
     Dosage: 10000 IU BID
     Dates: start: 19820604, end: 19820607

REACTIONS (6)
  - CARDIAC FAILURE [None]
  - CIRCULATORY COLLAPSE [None]
  - ERGOT POISONING [None]
  - GENERAL PHYSICAL HEALTH DETERIORATION [None]
  - PERIPHERAL ISCHAEMIA [None]
  - POST PROCEDURAL COMPLICATION [None]
